FAERS Safety Report 21145747 (Version 1)
Quarter: 2022Q3

REPORT INFORMATION
  Report Type: Spontaneous
  Country: US (occurrence: None)
  Receive Date: 20220729
  Receipt Date: 20220729
  Transmission Date: 20221027
  Serious: Yes (Hospitalization)
  Sender: FDA-Public Use
  Company Number: 2022A264199

PATIENT
  Age: 812 Month
  Sex: Male

DRUGS (1)
  1. BUDESONIDE\FORMOTEROL\GLYCOPYRRONIUM [Suspect]
     Active Substance: BUDESONIDE\FORMOTEROL\GLYCOPYRRONIUM
     Indication: Chronic obstructive pulmonary disease
     Dosage: 160/9/4.8 MCG TWO PUFFS TWICE DAILY
     Route: 055
     Dates: start: 2022

REACTIONS (3)
  - Lung neoplasm malignant [Recovered/Resolved]
  - Product dose omission issue [Recovered/Resolved]
  - Device delivery system issue [Recovered/Resolved]

NARRATIVE: CASE EVENT DATE: 20220701
